FAERS Safety Report 24867680 (Version 1)
Quarter: 2025Q1

REPORT INFORMATION
  Report Type: Spontaneous
  Country: US (occurrence: None)
  Receive Date: 20250120
  Receipt Date: 20250120
  Transmission Date: 20250409
  Serious: Yes (Hospitalization)
  Sender: FDA-CTU
  Company Number: None

PATIENT
  Age: 92 Year
  Sex: Male

DRUGS (1)
  1. HUMIRA [Suspect]
     Active Substance: ADALIMUMAB
     Indication: Colitis ulcerative
     Dosage: FREQUENCY : EVERY OTHER WEEK;?

REACTIONS (5)
  - Pneumonia [None]
  - Pancreatitis [None]
  - Therapy interrupted [None]
  - Wrong technique in device usage process [None]
  - Wrong technique in product usage process [None]

NARRATIVE: CASE EVENT DATE: 20241224
